FAERS Safety Report 6647402-0 (Version None)
Quarter: 2010Q1

REPORT INFORMATION
  Report Type: 
  Country: None (occurrence: None)
  Receive Date: 20100322
  Receipt Date: 20100322
  Transmission Date: 20100710
  Serious: Yes (Life-Threatening)
  Sender: FDA-Public Use
  Company Number: None

PATIENT
  Age: 59 Year
  Sex: Male

DRUGS (1)
  1. IODINE [Suspect]
     Dates: start: 20090821, end: 20090821

REACTIONS (1)
  - VENTRICULAR FIBRILLATION [None]
